FAERS Safety Report 6121730-X (Version None)
Quarter: 2009Q1

REPORT INFORMATION
  Report Type: 
  Country: None (occurrence: None)
  Receive Date: 20090317
  Receipt Date: 20090316
  Transmission Date: 20090719
  Serious: Yes (Other)
  Sender: FDA-Public Use
  Company Number: US-PFIZER INC-2007097143

PATIENT
  Sex: Female
  Weight: 72.6 kg

DRUGS (13)
  1. CHANTIX [Suspect]
     Indication: SMOKING CESSATION THERAPY
     Dates: start: 20070801
  2. METFORMIN HCL [Concomitant]
  3. FUROSEMIDE [Concomitant]
  4. CRESTOR [Concomitant]
  5. ADVAIR HFA [Concomitant]
     Route: 055
  6. MONTELUKAST [Concomitant]
  7. ASPIRIN [Concomitant]
  8. VITAMINS [Concomitant]
  9. POTASSIUM CHLORIDE [Concomitant]
  10. CELEBREX [Concomitant]
  11. PRAVASTATIN [Concomitant]
  12. ZANTAC [Concomitant]
  13. ALL OTHER THERAPEUTIC PRODUCTS [Concomitant]

REACTIONS (4)
  - ABNORMAL DREAMS [None]
  - DELIRIUM TREMENS [None]
  - TREMOR [None]
  - WEIGHT INCREASED [None]
